FAERS Safety Report 7376782-6 (Version None)
Quarter: 2011Q1

REPORT INFORMATION
  Report Type: 
  Country: None (occurrence: None)
  Receive Date: 20110325
  Receipt Date: 20110315
  Transmission Date: 20110831
  Serious: Yes (Hospitalization, Other)
  Sender: FDA-Public Use
  Company Number: US-AMGEN-USASP2011014995

PATIENT
  Age: 9 Year
  Sex: Female
  Weight: 23 kg

DRUGS (11)
  1. SYMBICORT [Concomitant]
     Dosage: UNK
  2. EPOGEN [Suspect]
  3. CELLCEPT [Concomitant]
     Dosage: UNK
  4. PHOSLO [Concomitant]
     Dosage: UNK
  5. ALBUTEROL [Concomitant]
     Dosage: UNK
  6. HUMAN RED BLOOD CELLS [Concomitant]
  7. IRON [Concomitant]
     Dosage: UNK
  8. PULMOZYME [Concomitant]
     Dosage: UNK
  9. PERIACTIN [Concomitant]
     Dosage: UNK
  10. VALGANCICLOVIR [Concomitant]
     Indication: ANAEMIA
  11. ATENOLOL [Concomitant]
     Dosage: UNK

REACTIONS (9)
  - ANTI-ERYTHROPOIETIN ANTIBODY [None]
  - WHITE BLOOD CELL COUNT DECREASED [None]
  - RETICULOCYTE COUNT DECREASED [None]
  - HAEMOGLOBIN DECREASED [None]
  - HLA MARKER STUDY POSITIVE [None]
  - HOSPITALISATION [None]
  - TRANSFUSION [None]
  - MACROCYTOSIS [None]
  - MEAN CELL VOLUME INCREASED [None]
